FAERS Safety Report 7433366-9 (Version None)
Quarter: 2011Q2

REPORT INFORMATION
  Report Type: 
  Country: None (occurrence: None)
  Receive Date: 20110422
  Receipt Date: 20110419
  Transmission Date: 20111010
  Serious: No
  Sender: FDA-Public Use
  Company Number: US-B.I. PHARMACEUTICALS,INC./RIDGEFIELD-2011-BP-11201BP

PATIENT
  Age: 56 Year
  Sex: Male

DRUGS (16)
  1. QUINAPRIL HCL [Concomitant]
     Dosage: 40 MG
     Route: 048
  2. TEMAZEPAM [Concomitant]
     Dosage: 30 MG
     Route: 048
  3. TIOTROPIUM [Concomitant]
     Dosage: 18 MCG
     Route: 055
  4. ALPRAZOLAM [Concomitant]
     Dosage: 4 MG
     Route: 048
  5. ARIPIPRAZOLE [Concomitant]
     Dosage: 2 MG
     Route: 048
  6. IPRATROPIUM BROMIDE [Concomitant]
     Route: 055
  7. SERTRALINE HYDROCHLORIDE [Concomitant]
     Dosage: 200 MG
     Route: 048
  8. LANSOPRAZOLE [Concomitant]
     Dosage: 30 MG
     Route: 048
  9. PRADAXA [Suspect]
     Indication: ATRIAL FIBRILLATION
     Dosage: 300 MG
     Route: 048
     Dates: start: 20110201, end: 20110201
  10. MONTELUKAST [Concomitant]
     Dosage: 10 MG
     Route: 048
  11. PREGABALIN [Concomitant]
     Dosage: 150 MG
     Route: 048
  12. ALBUTEROL [Concomitant]
     Dosage: 8 PUF
     Route: 055
  13. BUDESONIDE [Concomitant]
     Route: 055
  14. FLUTICAS 500/SALMETEROL 50 [Concomitant]
     Dosage: 2 PUF
     Route: 055
  15. ATORVASTATIN CALCIUM [Concomitant]
     Dosage: 40 MG
     Route: 048
  16. TRAZODONE HCL [Concomitant]
     Dosage: 100 MG
     Route: 048

REACTIONS (1)
  - MYALGIA [None]
